FAERS Safety Report 5081929-0 (Version None)
Quarter: 2006Q3

REPORT INFORMATION
  Report Type: 
  Country: None (occurrence: None)
  Receive Date: 20060811
  Receipt Date: 20060727
  Transmission Date: 20061208
  Serious: Yes (Life-Threatening, Hospitalization, Disabling, Other)
  Sender: FDA-Public Use
  Company Number: 2006MP000934

PATIENT
  Age: 33 Year
  Sex: Female

DRUGS (5)
  1. AGGRASTAT [Suspect]
     Indication: THROMBOSIS
     Dosage: SEE IMAGE
     Route: 042
  2. AGGRASTAT [Suspect]
     Indication: THROMBOSIS
     Dosage: SEE IMAGE
     Route: 042
  3. ASPIRIN [Concomitant]
  4. CLOPIDOGREL BISULFATE [Concomitant]
  5. HEPARIN [Concomitant]

REACTIONS (7)
  - CHEST PAIN [None]
  - CORONARY ARTERY OCCLUSION [None]
  - ELECTROCARDIOGRAM ST SEGMENT ELEVATION [None]
  - PROTEIN C DECREASED [None]
  - PROTEIN S DECREASED [None]
  - STENT OCCLUSION [None]
  - THROMBOSIS IN DEVICE [None]
